FAERS Safety Report 11594638 (Version 1)
Quarter: 2015Q4

REPORT INFORMATION
  Report Type: Report from Study
  Country: US (occurrence: US)
  Receive Date: 20151005
  Receipt Date: 20151005
  Transmission Date: 20160304
  Serious: Yes (Hospitalization)
  Sender: FDA-Public Use
  Company Number: US-ACTELION-A-NJ2015-124808

PATIENT
  Age: 60 Year
  Sex: Female

DRUGS (2)
  1. RENVELA [Concomitant]
     Active Substance: SEVELAMER CARBONATE
     Dosage: 800 MG, TID
  2. MACITENTAN [Suspect]
     Active Substance: MACITENTAN
     Indication: PULMONARY HYPERTENSION
     Dosage: 10 MG, QD
     Route: 048
     Dates: start: 20150604, end: 20150922

REACTIONS (8)
  - Rectal haemorrhage [Recovered/Resolved]
  - Abdominal distension [Not Recovered/Not Resolved]
  - Fatigue [Recovered/Resolved]
  - Abdominal discomfort [Not Recovered/Not Resolved]
  - Oedema peripheral [Not Recovered/Not Resolved]
  - Transfusion [Unknown]
  - Paracentesis [Unknown]
  - Ascites [Not Recovered/Not Resolved]

NARRATIVE: CASE EVENT DATE: 20150827
